FAERS Safety Report 9575331 (Version 2)
Quarter: 2013Q4

REPORT INFORMATION
  Report Type: Spontaneous
  Country: US (occurrence: US)
  Receive Date: 20131001
  Receipt Date: 20131024
  Transmission Date: 20140711
  Serious: No
  Sender: FDA-Public Use
  Company Number: US-TEVA-434602USA

PATIENT
  Sex: Female
  Weight: 68.1 kg

DRUGS (3)
  1. PROAIR HFA [Suspect]
     Indication: ASTHMA
  2. Z-PAK [Concomitant]
     Indication: UPPER RESPIRATORY TRACT INFECTION
  3. STEROID [Concomitant]
     Indication: ASTHMA

REACTIONS (4)
  - Wheezing [Not Recovered/Not Resolved]
  - Increased upper airway secretion [Unknown]
  - Inflammation [Unknown]
  - Asthma [Unknown]
